FAERS Safety Report 6540196-9 (Version None)
Quarter: 2010Q1

REPORT INFORMATION
  Report Type: 
  Country: None (occurrence: None)
  Receive Date: 20100115
  Receipt Date: 20100106
  Transmission Date: 20100710
  Serious: Yes (Hospitalization)
  Sender: FDA-Public Use
  Company Number: CH-WATSON-2010-00311

PATIENT
  Age: 55 Year
  Sex: Female

DRUGS (3)
  1. PRAVASTATIN SODIUM [Suspect]
     Indication: HYPERLIPIDAEMIA
     Dosage: 20 MG, UNKNOWN
  2. LITHIUM CARBONATE [Suspect]
     Indication: DRUG USE FOR UNKNOWN INDICATION
     Dosage: 900 MG, DAILY
     Route: 065
  3. OLANZAPINE [Suspect]
     Indication: DRUG USE FOR UNKNOWN INDICATION
     Dosage: 10 MG, DAILY
     Route: 065

REACTIONS (5)
  - DRUG INTERACTION [None]
  - HYPERSENSITIVITY [None]
  - PIGMENTATION DISORDER [None]
  - RASH ERYTHEMATOUS [None]
  - RASH PRURITIC [None]
